FAERS Safety Report 7438323-4 (Version None)
Quarter: 2011Q2

REPORT INFORMATION
  Report Type: 
  Country: None (occurrence: None)
  Receive Date: 20110426
  Receipt Date: 20110419
  Transmission Date: 20111010
  Serious: Yes (Other)
  Sender: FDA-Public Use
  Company Number: US-SANOFI-AVENTIS-2011SA025047

PATIENT
  Age: 62 Year
  Sex: Male
  Weight: 108.9 kg

DRUGS (2)
  1. DDAVP [Suspect]
     Dosage: 0.1 MG TAB
     Route: 048
     Dates: start: 20110401
  2. DDAVP [Suspect]
     Route: 045
     Dates: end: 20110401

REACTIONS (3)
  - ARTERIAL OCCLUSIVE DISEASE [None]
  - DRUG INEFFECTIVE [None]
  - POLLAKIURIA [None]
